FAERS Safety Report 8392825-5 (Version None)
Quarter: 2012Q1

REPORT INFORMATION
  Report Type: 
  Country: None (occurrence: None)
  Receive Date: 20120323
  Receipt Date: 20110311
  Transmission Date: 20120608
  Serious: Yes (Hospitalization)
  Sender: FDA-Public Use
  Company Number: 163-21880-11031540

PATIENT
  Age: 69 Year
  Sex: Male
  Weight: 94.3482 kg

DRUGS (10)
  1. PROCRIT [Concomitant]
  2. ALLOPURINOL [Concomitant]
  3. REVLIMID [Suspect]
     Indication: MULTIPLE MYELOMA
     Dosage: PO
     Route: 048
     Dates: start: 20091013
  4. METOPROLOL TARTRATE [Concomitant]
  5. PRAVASTATIN [Concomitant]
  6. MAGNESIUM OXIDE (MAGNESIUM OXIDE) [Concomitant]
  7. PERCOCET [Concomitant]
  8. ZOLPIDEM [Concomitant]
  9. ACYCLOVIR [Concomitant]
  10. VERAPAMIL [Concomitant]

REACTIONS (1)
  - PNEUMONIA [None]
